FAERS Safety Report 18991360 (Version 1)
Quarter: 2021Q1

REPORT INFORMATION
  Report Type: Spontaneous
  Country: DE (occurrence: DE)
  Receive Date: 20210310
  Receipt Date: 20210310
  Transmission Date: 20210420
  Serious: Yes (Other)
  Sender: FDA-Public Use
  Company Number: NVSC2021DE045683

PATIENT
  Age: 71 Year
  Sex: Female

DRUGS (2)
  1. MYFORTIC [Suspect]
     Active Substance: MYCOPHENOLATE SODIUM
     Indication: EYE DISORDER
     Dosage: 360 MG (2X2) TABLETS (720 MG ? 0 ? 720 MG)
     Route: 065
     Dates: start: 2005
  2. INFLUENZA VACCINE [Suspect]
     Active Substance: INFLUENZA VIRUS VACCINE
     Indication: PRODUCT USED FOR UNKNOWN INDICATION
     Dosage: UNK
     Route: 065

REACTIONS (8)
  - Gastric disorder [Unknown]
  - Gastric ulcer [Unknown]
  - Gastric pH decreased [Unknown]
  - Product use in unapproved indication [Unknown]
  - Polyp [Unknown]
  - Hepatic enzyme increased [Unknown]
  - Influenza [Unknown]
  - Renal disorder [Unknown]
